FAERS Safety Report 9447997 (Version 1)
Quarter: 2013Q3

REPORT INFORMATION
  Report Type: Spontaneous
  Country: BR (occurrence: BR)
  Receive Date: 20130808
  Receipt Date: 20130808
  Transmission Date: 20140515
  Serious: Yes (Other)
  Sender: FDA-Public Use
  Company Number: BR-NOVOPROD-384515

PATIENT
  Sex: Female
  Weight: 62 kg

DRUGS (10)
  1. NOVOLIN N [Suspect]
     Indication: TYPE 2 DIABETES MELLITUS
     Dosage: 40 IU, QD
     Route: 058
     Dates: start: 1993
  2. NOVOLIN R [Suspect]
     Indication: TYPE 2 DIABETES MELLITUS
     Dosage: 30 IU, QD
     Route: 058
     Dates: start: 1993
  3. ATORVASTATIN [Concomitant]
     Indication: BLOOD CHOLESTEROL ABNORMAL
     Dosage: 1 TAB, QD (40 MG)
     Route: 048
  4. CILOSTAZOL [Concomitant]
     Dosage: 2 TAB, QD (50 MG)
     Route: 048
  5. AMITRIPTYLINE [Concomitant]
     Dosage: 2 TAB, QD (25 MG)
     Route: 048
  6. ATENOLOL [Concomitant]
     Indication: HYPERTENSION
     Dosage: 4 TAB, QD (25 MG)
     Route: 048
  7. HIDROCLOROTIAZIDE [Concomitant]
     Indication: HYPERTENSION
     Dosage: 1 TAB, QD (25 MG)
     Route: 048
  8. ENALAPRIL [Concomitant]
     Indication: HYPERTENSION
     Dosage: 1 TAB, QD (20 MG)
     Route: 048
  9. GLIFAGE [Concomitant]
     Indication: TYPE 2 DIABETES MELLITUS
     Dosage: 2 TAB, QD (850 MG)
     Route: 048
     Dates: start: 1993
  10. GABAPENTIN [Concomitant]
     Dosage: 2 TAB, QD (400 MG)
     Route: 048

REACTIONS (3)
  - Vitrectomy [Unknown]
  - Visual impairment [Unknown]
  - Syncope [Unknown]
